APPROVED DRUG PRODUCT: STERILE WATER FOR INJECTION IN PLASTIC CONTAINER
Active Ingredient: STERILE WATER FOR INJECTION
Strength: 100%
Dosage Form/Route: LIQUID;N/A
Application: A077393 | Product #001
Applicant: TARO PHARMACEUTICALS USA INC
Approved: Aug 11, 2006 | RLD: No | RS: No | Type: DISCN